FAERS Safety Report 8498762-X (Version None)
Quarter: 2012Q3

REPORT INFORMATION
  Report Type: 
  Country: None (occurrence: None)
  Receive Date: 20120709
  Receipt Date: 20120629
  Transmission Date: 20120928
  Serious: No
  Sender: FDA-Public Use
  Company Number: US-AMGEN-USASP2012040324

PATIENT
  Age: 33 Year
  Sex: Male

DRUGS (2)
  1. CYCLOSPORINE [Concomitant]
     Dosage: 1 MG, UNK
  2. ENBREL [Suspect]
     Indication: PSORIATIC ARTHROPATHY
     Dosage: 50 MG ONCE IN FIVE DAYS
     Dates: start: 20010801

REACTIONS (2)
  - WEIGHT INCREASED [None]
  - PSORIATIC ARTHROPATHY [None]
